FAERS Safety Report 23160533 (Version 1)
Quarter: 2023Q4

REPORT INFORMATION
  Report Type: Spontaneous
  Country: US (occurrence: US)
  Receive Date: 20231108
  Receipt Date: 20231108
  Transmission Date: 20240110
  Serious: Yes (Other)
  Sender: FDA-Public Use
  Company Number: US-LANTHEUS-LMI-2023-01316

PATIENT
  Age: 30 Year
  Sex: Female
  Weight: 148 kg

DRUGS (2)
  1. DEFINITY [Suspect]
     Active Substance: PERFLUTREN
     Indication: Echocardiogram
     Dosage: 2 MILLILITRE (2.0 ML DEFINITY PREPARED IN 8.0 ML NS)
     Route: 042
     Dates: start: 20231103, end: 20231103
  2. OXYGEN [Concomitant]
     Active Substance: OXYGEN
     Indication: Product used for unknown indication
     Dosage: 2 LITRE
     Route: 045

REACTIONS (9)
  - Acute respiratory failure [Recovered/Resolved]
  - Cyanosis [Recovered/Resolved]
  - Asthma [Recovered/Resolved]
  - Loss of consciousness [Recovered/Resolved]
  - Drug hypersensitivity [Recovered/Resolved]
  - Throat tightness [Recovered/Resolved]
  - Dyspnoea [Recovered/Resolved]
  - Feeling abnormal [Recovered/Resolved]
  - Presyncope [Recovered/Resolved]

NARRATIVE: CASE EVENT DATE: 20231103
